FAERS Safety Report 6430300-5 (Version None)
Quarter: 2009Q4

REPORT INFORMATION
  Report Type: 
  Country: None (occurrence: None)
  Receive Date: 20091105
  Receipt Date: 20091105
  Transmission Date: 20100525
  Serious: No
  Sender: FDA-Public Use
  Company Number: None

PATIENT
  Sex: Female
  Weight: 65.7716 kg

DRUGS (3)
  1. DEPAKOTE ER [Suspect]
     Indication: EPILEPSY
     Dosage: 1000 MG Q HS PO
     Route: 048
     Dates: start: 19980101
  2. DILANTIN [Suspect]
     Indication: EPILEPSY
     Dosage: 200 MG Q HS PO
     Route: 048
     Dates: start: 19970101
  3. DILANTIN-30 [Suspect]
     Indication: EPILEPSY
     Dosage: 60 MG Q HS PO
     Route: 048
     Dates: start: 19970101

REACTIONS (1)
  - NO ADVERSE EVENT [None]
